FAERS Safety Report 10173157 (Version 1)
Quarter: 2014Q2

REPORT INFORMATION
  Report Type: Spontaneous
  Country: US (occurrence: None)
  Receive Date: 20140416
  Receipt Date: 20140416
  Transmission Date: 20141212
  Serious: No
  Sender: FDA-Public Use
  Company Number: 163-POMAL-14020898

PATIENT
  Age: 54 Year
  Sex: Male
  Weight: 81.65 kg

DRUGS (2)
  1. POMALYST (POMALIDOMIDE) (2 MILLIGRAM, CAPSULES) [Suspect]
     Indication: PLASMA CELL MYELOMA
     Route: 048
     Dates: start: 20130927
  2. DEXAMETHASONE (DEXAMETHASONE) [Concomitant]

REACTIONS (1)
  - Wound [None]
